FAERS Safety Report 16715082 (Version 3)
Quarter: 2019Q3

REPORT INFORMATION
  Report Type: Report from Study
  Country: BR (occurrence: BR)
  Receive Date: 20190819
  Receipt Date: 20190912
  Transmission Date: 20191005
  Serious: Yes (Other)
  Sender: FDA-Public Use
  Company Number: BR-JNJFOC-20181140204

PATIENT
  Age: 58 Year
  Sex: Male
  Weight: 60 kg

DRUGS (11)
  1. PACO [Suspect]
     Active Substance: ACETAMINOPHEN\CODEINE PHOSPHATE
     Indication: OSTEOARTHRITIS
  2. BIO-MANGUINHOS INFLIXIMABE [Suspect]
     Active Substance: INFLIXIMAB
     Indication: CROHN^S DISEASE
     Route: 042
     Dates: start: 20181018
  3. LOSARTAN. [Concomitant]
     Active Substance: LOSARTAN
     Indication: HYPERTENSION
     Route: 065
  4. BIO-MANGUINHOS INFLIXIMABE [Suspect]
     Active Substance: INFLIXIMAB
     Route: 042
     Dates: start: 201903
  5. AZATHIOPRINE. [Concomitant]
     Active Substance: AZATHIOPRINE
     Route: 065
  6. PREDNISONE. [Suspect]
     Active Substance: PREDNISONE
     Indication: PRODUCT USED FOR UNKNOWN INDICATION
     Route: 065
  7. PACO [Suspect]
     Active Substance: ACETAMINOPHEN\CODEINE PHOSPHATE
     Indication: FIBROMYALGIA
     Route: 065
  8. DEPAKENE-R [Concomitant]
     Active Substance: VALPROATE SODIUM
     Indication: ALCOHOLISM
     Route: 065
  9. LONGACTIL [Concomitant]
     Active Substance: CHLORPROMAZINE HYDROCHLORIDE
     Indication: ALCOHOLISM
     Route: 065
  10. AMPLICTIL [Concomitant]
     Active Substance: CHLORPROMAZINE HYDROCHLORIDE
     Indication: ALCOHOLISM
     Route: 065
  11. PACO [Suspect]
     Active Substance: ACETAMINOPHEN\CODEINE PHOSPHATE
     Indication: EXOSTOSIS

REACTIONS (17)
  - Dizziness [Recovered/Resolved]
  - Oral herpes [Unknown]
  - Exostosis [Unknown]
  - Adverse drug reaction [Unknown]
  - Rheumatoid arthritis [Unknown]
  - Intestinal obstruction [Unknown]
  - Fibromyalgia [Unknown]
  - Crohn^s disease [Recovering/Resolving]
  - Nasopharyngitis [Unknown]
  - Pollakiuria [Not Recovered/Not Resolved]
  - Blood pressure fluctuation [Recovered/Resolved]
  - Gastrointestinal infection [Not Recovered/Not Resolved]
  - Nonspecific reaction [Unknown]
  - Bone pain [Not Recovered/Not Resolved]
  - Gastric disorder [Unknown]
  - Osteoarthritis [Unknown]
  - Product dose omission [Unknown]

NARRATIVE: CASE EVENT DATE: 20181212
